FAERS Safety Report 7789245-0 (Version None)
Quarter: 2011Q3

REPORT INFORMATION
  Report Type: 
  Country: None (occurrence: None)
  Receive Date: 20110930
  Receipt Date: 20110921
  Transmission Date: 20111222
  Serious: Yes (Other)
  Sender: FDA-Public Use
  Company Number: DE-ASTRAZENECA-2011SE53921

PATIENT
  Sex: Male
  Weight: 75 kg

DRUGS (5)
  1. BETA-BLOCKER [Interacting]
     Indication: HYPERTENSION
  2. UNSPECIFIED PROSTATE DRUG [Interacting]
  3. SEROQUEL [Suspect]
     Indication: DEMENTIA
     Route: 048
     Dates: start: 20110719, end: 20110909
  4. SEROQUEL [Interacting]
     Indication: ANXIETY
     Route: 048
     Dates: start: 20110719, end: 20110909
  5. SEROQUEL [Interacting]
     Indication: DELUSION
     Route: 048
     Dates: start: 20110719, end: 20110909

REACTIONS (5)
  - DRUG INTERACTION [None]
  - LIBIDO INCREASED [None]
  - HEADACHE [None]
  - LIP SWELLING [None]
  - SYNCOPE [None]
